FAERS Safety Report 8591327-0 (Version None)
Quarter: 2012Q3

REPORT INFORMATION
  Report Type: 
  Country: None (occurrence: None)
  Receive Date: 20120801
  Receipt Date: 20120719
  Transmission Date: 20120928
  Serious: Yes (Hospitalization, Other)
  Sender: FDA-Public Use
  Company Number: ADR-2012-01382

PATIENT

DRUGS (2)
  1. BACLOFEN [Suspect]
     Indication: AUTONOMIC NERVOUS SYSTEM IMBALANCE
  2. BACLOFEN [Suspect]
     Indication: CRANIOCEREBRAL INJURY

REACTIONS (1)
  - IMPLANT SITE HAEMATOMA [None]
